FAERS Safety Report 12894387 (Version 3)
Quarter: 2017Q1

REPORT INFORMATION
  Report Type: Spontaneous
  Country: US (occurrence: US)
  Receive Date: 20161028
  Receipt Date: 20170109
  Transmission Date: 20170428
  Serious: Yes (Hospitalization)
  Sender: FDA-Public Use
  Company Number: US-SA-2016SA195132

PATIENT
  Age: 63 Year
  Sex: Female

DRUGS (20)
  1. ALDACTONE [Concomitant]
     Active Substance: SPIRONOLACTONE
  2. TEMAZEPAM. [Concomitant]
     Active Substance: TEMAZEPAM
  3. TOUJEO [Suspect]
     Active Substance: INSULIN GLARGINE
     Indication: TYPE 2 DIABETES MELLITUS
     Dosage: DOSE:32 UNIT(S)
     Route: 065
     Dates: start: 201404, end: 2016
  4. SOLOSTAR [Concomitant]
     Active Substance: DEVICE
     Indication: TYPE 2 DIABETES MELLITUS
     Dates: start: 201404, end: 2016
  5. LANTUS [Concomitant]
     Active Substance: INSULIN GLARGINE
     Dosage: DOSE:74 UNIT(S)
     Dates: start: 20101124
  6. MINERALS NOS/VITAMINS NOS [Concomitant]
  7. PROAIR HFA [Concomitant]
     Active Substance: ALBUTEROL SULFATE
  8. HUMALOG [Concomitant]
     Active Substance: INSULIN LISPRO
     Route: 040
  9. LOSARTAN POTASSIUM. [Concomitant]
     Active Substance: LOSARTAN POTASSIUM
  10. FLUTICASONE. [Concomitant]
     Active Substance: FLUTICASONE
  11. SYMBICORT [Concomitant]
     Active Substance: BUDESONIDE\FORMOTEROL FUMARATE DIHYDRATE
     Dosage: DOSE: 2 PUFFS
  12. ROBAXIN [Concomitant]
     Active Substance: METHOCARBAMOL
  13. CALCIUM [Concomitant]
     Active Substance: CALCIUM
  14. FIORICET [Concomitant]
     Active Substance: ACETAMINOPHEN\BUTALBITAL\CAFFEINE
  15. ALLEGRA [Concomitant]
     Active Substance: FEXOFENADINE HYDROCHLORIDE
  16. SYNTHROID [Concomitant]
     Active Substance: LEVOTHYROXINE SODIUM
  17. TYLENOL [Concomitant]
     Active Substance: ACETAMINOPHEN
  18. ASPIRIN. [Concomitant]
     Active Substance: ASPIRIN
  19. PREVACID [Concomitant]
     Active Substance: LANSOPRAZOLE
  20. MAGNESIUM [Concomitant]
     Active Substance: MAGNESIUM

REACTIONS (3)
  - Product use issue [Unknown]
  - Arterial thrombosis [Recovered/Resolved]
  - Myocardial infarction [Recovered/Resolved]

NARRATIVE: CASE EVENT DATE: 201404
